FAERS Safety Report 8517551-0 (Version None)
Quarter: 2012Q2

REPORT INFORMATION
  Report Type: 
  Country: None (occurrence: None)
  Receive Date: 20120406
  Receipt Date: 20090619
  Transmission Date: 20120825
  Serious: Yes (Other)
  Sender: FDA-Public Use
  Company Number: PHEH2009US06453

PATIENT
  Age: 44 Year
  Sex: Female
  Weight: 68.9 kg

DRUGS (1)
  1. TASIGNA [Suspect]
     Indication: CHRONIC MYELOID LEUKAEMIA
     Dosage: 400 MG, BID, ORAL
     Route: 048
     Dates: start: 20090611, end: 20090617

REACTIONS (9)
  - ARTHRALGIA [None]
  - CHEST PAIN [None]
  - BACK PAIN [None]
  - NAUSEA [None]
  - PRURITUS [None]
  - HEADACHE [None]
  - RASH GENERALISED [None]
  - PAIN IN EXTREMITY [None]
  - BONE PAIN [None]
